FAERS Safety Report 12377665 (Version 1)
Quarter: 2016Q2

REPORT INFORMATION
  Report Type: Report from Study
  Country: US (occurrence: US)
  Receive Date: 20160517
  Receipt Date: 20160517
  Transmission Date: 20160815
  Serious: No
  Sender: FDA-Public Use
  Company Number: US-MALLINCKRODT-T201506062

PATIENT
  Age: 54 Year
  Sex: Female
  Weight: 70 kg

DRUGS (10)
  1. CYCLOBENZAPRINE [Concomitant]
     Active Substance: CYCLOBENZAPRINE
     Dosage: 10MG /2TO 1 TABLET TID
  2. ASPIRIN. [Concomitant]
     Active Substance: ASPIRIN
     Dosage: 81MG ONCE DAILY
  3. METAMUCIL [Concomitant]
     Active Substance: PLANTAGO SEED
     Dosage: TWICE DAILY
  4. REPOSITORY CORTICOTROPIN INJECTION [Suspect]
     Active Substance: CORTICOTROPIN
     Indication: MULTIPLE SCLEROSIS RELAPSE
     Dosage: 1ML DAILY FOR 5 DAYS
     Route: 065
     Dates: start: 2014
  5. REBIF [Concomitant]
     Active Substance: INTERFERON BETA-1A
     Dosage: 44MG THREE TIMES WEEKLY
  6. DIAZEPAM. [Concomitant]
     Active Substance: DIAZEPAM
     Dosage: 5MG THREE TIMES DAILY
  7. LORAZEPAM. [Concomitant]
     Active Substance: LORAZEPAM
     Dosage: ? TABLET DAILY, AND 1 TABLET IN THE EVENING
  8. DOXYCYCLINE. [Concomitant]
     Active Substance: DOXYCYCLINE
     Dosage: 200MG ONCE DAILY
  9. NORVASC [Concomitant]
     Active Substance: AMLODIPINE BESYLATE
     Dosage: 5MG ONCE DAILY
  10. PROBIOTIC [Concomitant]
     Active Substance: PROBIOTICS NOS

REACTIONS (3)
  - Arthropod bite [Recovering/Resolving]
  - Multiple sclerosis relapse [Recovering/Resolving]
  - Drug dose omission [Not Recovered/Not Resolved]

NARRATIVE: CASE EVENT DATE: 2014
